FAERS Safety Report 11467609 (Version 1)
Quarter: 2015Q3

REPORT INFORMATION
  Report Type: Spontaneous
  Country: US (occurrence: US)
  Receive Date: 20150908
  Receipt Date: 20150908
  Transmission Date: 20151125
  Serious: No
  Sender: FDA-Public Use
  Company Number: US-TEVA-590079USA

PATIENT
  Age: 44 Year
  Sex: Female
  Weight: 65.83 kg

DRUGS (2)
  1. PREVACID [Concomitant]
     Active Substance: LANSOPRAZOLE
     Indication: GASTROOESOPHAGEAL REFLUX DISEASE
  2. PROAIR HFA [Suspect]
     Active Substance: ALBUTEROL SULFATE
     Indication: ASTHMA

REACTIONS (2)
  - Upper respiratory tract infection [Recovered/Resolved]
  - Blood ethanol [Not Recovered/Not Resolved]

NARRATIVE: CASE EVENT DATE: 20150801
